FAERS Safety Report 15006781 (Version 2)
Quarter: 2018Q2

REPORT INFORMATION
  Report Type: Report from Study
  Country: US (occurrence: US)
  Receive Date: 20180613
  Receipt Date: 20180614
  Transmission Date: 20180711
  Serious: No
  Sender: FDA-Public Use
  Company Number: US-US WORLDMEDS, LLC-USW201802-000180

PATIENT
  Age: 56 Year
  Sex: Male

DRUGS (1)
  1. APOKYN [Suspect]
     Active Substance: APOMORPHINE HYDROCHLORIDE
     Indication: PARKINSON^S DISEASE
     Dates: start: 20140401

REACTIONS (3)
  - Fall [Unknown]
  - Limb injury [Recovering/Resolving]
  - Clumsiness [Recovering/Resolving]

NARRATIVE: CASE EVENT DATE: 20180201
